FAERS Safety Report 4809681-1 (Version None)
Quarter: 2005Q4

REPORT INFORMATION
  Report Type: 
  Country: None (occurrence: None)
  Receive Date: 20051021
  Receipt Date: 20040114
  Transmission Date: 20060501
  Serious: Yes (Other)
  Sender: FDA-Public Use
  Company Number: USA040156618

PATIENT
  Age: 25 Year
  Sex: Male

DRUGS (2)
  1. ZYPREXA [Suspect]
     Dosage: 10 MG/DAY
  2. ZOLOFT [Concomitant]

REACTIONS (4)
  - ANAEMIA [None]
  - NAUSEA [None]
  - SMOKER [None]
  - SYNCOPE [None]
